FAERS Safety Report 4831235-1 (Version None)
Quarter: 2005Q4

REPORT INFORMATION
  Report Type: 
  Country: None (occurrence: None)
  Receive Date: 20051114
  Receipt Date: 20051025
  Transmission Date: 20060501
  Serious: Yes (Other)
  Sender: FDA-Public Use
  Company Number: TRP_0637_2005

PATIENT
  Age: 70 Year
  Sex: Female

DRUGS (9)
  1. AMPHOCIL [Suspect]
     Indication: ASPERGILLOSIS
     Dosage: 25 MG PER 24HR, IV
     Route: 042
     Dates: start: 20040313, end: 20040315
  2. TRAMADOL [Concomitant]
  3. PERINDOPRIL [Concomitant]
  4. PREDNISOLONE [Concomitant]
  5. MIXTARD HUMAN 70/30 [Concomitant]
  6. ACETYLSALICYLIC ACID [Concomitant]
  7. ROFECOXIB [Concomitant]
  8. FUROSEMIDE [Concomitant]
  9. AMPHOTERICIN B [Concomitant]

REACTIONS (4)
  - BLOOD ALBUMIN DECREASED [None]
  - BLOOD ALKALINE PHOSPHATASE INCREASED [None]
  - BLOOD CREATININE INCREASED [None]
  - THROMBOCYTOPENIA [None]
